FAERS Safety Report 15289896 (Version 3)
Quarter: 2018Q3

REPORT INFORMATION
  Report Type: Report from Study
  Country: JP (occurrence: JP)
  Receive Date: 20180817
  Receipt Date: 20180907
  Transmission Date: 20181010
  Serious: Yes (Hospitalization)
  Sender: FDA-Public Use
  Company Number: JP-PFIZER INC-2018322192

PATIENT
  Age: 70 Year
  Sex: Male
  Weight: 52 kg

DRUGS (20)
  1. AVELUMAB [Suspect]
     Active Substance: AVELUMAB
     Dosage: 559 MG, EVERY 2 WEEKS
     Route: 042
     Dates: start: 20180514, end: 20180723
  2. LEVOTHYROXINE NA [Concomitant]
     Active Substance: LEVOTHYROXINE SODIUM
     Indication: HYPOTHYROIDISM
     Dosage: 25 UG, 1X/DAY
     Route: 048
     Dates: start: 20180515
  3. LIFOROS [Concomitant]
     Active Substance: LACTULOSE
     Indication: HYPERAMMONAEMIA
     Dosage: 10 ML, 3X/DAY
     Route: 048
     Dates: start: 20170802, end: 20180809
  4. HYALEIN [Concomitant]
     Active Substance: HYALURONATE SODIUM
     Indication: GLAUCOMA
     Dosage: 1 APPLICATION, AS NEEDED
     Route: 047
     Dates: start: 2014
  5. OLMETEC [Concomitant]
     Active Substance: OLMESARTAN MEDOXOMIL
     Indication: HYPERTENSION
     Dosage: 10 MG, 1X/DAY
     Route: 048
     Dates: start: 20180122, end: 20180805
  6. ALBUMINAR [Concomitant]
     Active Substance: ALBUMIN HUMAN
     Indication: DECREASED APPETITE
     Dosage: 2 UNITS, SINGLE
     Route: 042
     Dates: start: 20180806, end: 20180806
  7. AXITINIB [Suspect]
     Active Substance: AXITINIB
     Dosage: 3 MG, 2X/DAY
     Route: 048
     Dates: start: 20180709, end: 20180805
  8. URSO [Concomitant]
     Active Substance: URSODIOL
     Indication: PROPHYLAXIS
     Dosage: 200 MG, 3X/DAY
     Route: 048
     Dates: start: 20140523
  9. KERATINAMIN KOWA /00481901/ [Concomitant]
     Indication: PALMAR-PLANTAR ERYTHRODYSAESTHESIA SYNDROME
     Dosage: 1 APPLICATION, AS NEEDED
     Route: 062
     Dates: start: 20180122
  10. NORVASC [Concomitant]
     Active Substance: AMLODIPINE BESYLATE
     Indication: HYPERTENSION
     Dosage: 5 MG, 1X/DAY
     Route: 048
     Dates: start: 20171101
  11. MIYA?BM [Concomitant]
     Active Substance: CLOSTRIDIUM BUTYRICUM SPORES STRAIN M-55
     Indication: DIARRHOEA
     Dosage: 1 TABLET, 3X/DAY
     Route: 048
     Dates: start: 20180709
  12. FAMOTIDINE. [Concomitant]
     Active Substance: FAMOTIDINE
     Indication: PROPHYLAXIS
     Dosage: 20 MG, 1X/DAY
     Route: 048
     Dates: start: 20140523
  13. LICKLE [Concomitant]
     Active Substance: ISOLEUCINE\LEUCINE\VALINE
     Indication: PROPHYLAXIS
     Dosage: 1 PACKAGE, 3X/DAY
     Route: 048
     Dates: start: 20140523
  14. TAPROS [Concomitant]
     Indication: GLAUCOMA
     Dosage: 1 APPLICATION, AS NEEDED
     Route: 047
     Dates: start: 20140512
  15. ALLOPURINOL. [Concomitant]
     Active Substance: ALLOPURINOL
     Indication: HYPERURICAEMIA
     Dosage: 100 MG, 1X/DAY
     Route: 048
     Dates: start: 20150826
  16. MYSERA [Concomitant]
     Active Substance: MOMETASONE FUROATE
     Indication: PALMAR-PLANTAR ERYTHRODYSAESTHESIA SYNDROME
     Dosage: 1 APPLICATION, AS NEEDED
     Route: 062
     Dates: start: 20180319, end: 20180805
  17. AXITINIB [Suspect]
     Active Substance: AXITINIB
     Indication: HEPATOCELLULAR CARCINOMA
     Dosage: 5 MG, 2X/DAY
     Route: 048
     Dates: start: 20171030, end: 20180709
  18. AVELUMAB [Suspect]
     Active Substance: AVELUMAB
     Indication: HEPATOCELLULAR CARCINOMA
     Dosage: 634 MG, UNK
     Dates: start: 20171030
  19. TAMSULOSIN HCL [Concomitant]
     Active Substance: TAMSULOSIN HYDROCHLORIDE
     Indication: BENIGN PROSTATIC HYPERPLASIA
     Dosage: 0.2 MG, 1X/DAY
     Route: 048
     Dates: start: 20161012
  20. CINAL [Concomitant]
     Active Substance: ASCORBIC ACID\CALCIUM PANTOTHENATE
     Indication: VITAMIN SUPPLEMENTATION
     Dosage: 1 G, 3X/DAY
     Route: 048
     Dates: start: 20170802, end: 20180806

REACTIONS (1)
  - Malaise [Recovered/Resolved]

NARRATIVE: CASE EVENT DATE: 20171128
